FAERS Safety Report 6305618-7 (Version None)
Quarter: 2009Q3

REPORT INFORMATION
  Report Type: 
  Country: None (occurrence: None)
  Receive Date: 20090806
  Receipt Date: 20090727
  Transmission Date: 20100115
  Serious: Yes (Other)
  Sender: FDA-Public Use
  Company Number: 2009AL005026

PATIENT
  Age: 59 Year
  Sex: Male

DRUGS (10)
  1. RAMIPRIL [Suspect]
     Indication: HYPERTENSION
     Dosage: 2.5 MG; QD; PO
     Route: 048
     Dates: start: 20090610, end: 20090630
  2. FOLIC ACID [Concomitant]
  3. METFORMIN HCL [Concomitant]
  4. FERROUS SULFATE TAB [Concomitant]
  5. ISOSORBIDE MONONITRATE [Concomitant]
  6. SIMVASTATIN [Concomitant]
  7. BISOPROLOL [Concomitant]
  8. CLOPIDOGREL [Concomitant]
  9. ASPIRIN [Concomitant]
  10. LISINOPRIL [Concomitant]

REACTIONS (4)
  - BRONCHOSPASM [None]
  - COMMUNICATION DISORDER [None]
  - COUGH [None]
  - DYSPNOEA [None]
